FAERS Safety Report 8957041 (Version 1)
Quarter: 2012Q4

REPORT INFORMATION
  Report Type: Spontaneous
  Country: US (occurrence: None)
  Receive Date: 20121205
  Receipt Date: 20121205
  Transmission Date: 20130627
  Serious: Yes (Other)
  Sender: FDA-Public Use
  Company Number: None

PATIENT
  Age: 42 Year
  Sex: Male
  Weight: 90.72 kg

DRUGS (1)
  1. PROPECIA 1MG MERCK [Suspect]
     Indication: HAIR LOSS
     Dates: start: 20070101, end: 20121203

REACTIONS (3)
  - Peyronie^s disease [None]
  - Dyspareunia [None]
  - Nodule [None]
